FAERS Safety Report 9331266 (Version 2)
Quarter: 2020Q3

REPORT INFORMATION
  Report Type: Spontaneous
  Country: ES (occurrence: ES)
  Receive Date: 20130605
  Receipt Date: 20130614
  Transmission Date: 20201105
  Serious: Yes (Other)
  Sender: FDA-Public Use
  Company Number: ES-PFIZER INC-2013168358

PATIENT
  Age: 78 Year
  Sex: Female

DRUGS (11)
  1. ALPRAZOLAM. [Suspect]
     Active Substance: ALPRAZOLAM
     Dosage: 0.25 MG, DAILY
     Route: 065
  2. NALOXONE/OXYCODONE [Suspect]
     Active Substance: NALOXONE HYDROCHLORIDE\OXYCODONE HYDROCHLORIDE
     Dosage: 40/20 EVERY 12H;
     Route: 048
  3. FLUVASTATIN [Suspect]
     Active Substance: FLUVASTATIN SODIUM
     Dosage: 80 MG, DAY (24H)
     Route: 065
  4. FOLIC ACID. [Suspect]
     Active Substance: FOLIC ACID
     Dosage: 7.5 MG, WEEKLY
     Route: 065
  5. METHOTREXATE. [Suspect]
     Active Substance: METHOTREXATE
     Dosage: 15 MG, WEEKLY
     Route: 065
  6. MORPHINE SULFATE. [Suspect]
     Active Substance: MORPHINE SULFATE
     Dosage: 8 MG, 2X/DAY
     Route: 048
  7. DEFLAZACORT [Suspect]
     Active Substance: DEFLAZACORT
     Dosage: 15 MG, 3X/DAY
     Route: 065
  8. IBANDRONIC ACID. [Suspect]
     Active Substance: IBANDRONIC ACID
     Dosage: 150 MG, DAILY
     Route: 065
  9. PREGABALIN. [Suspect]
     Active Substance: PREGABALIN
     Dosage: 25 MG, DAILY
     Route: 065
  10. OMEPRAZOLE. [Suspect]
     Active Substance: OMEPRAZOLE
     Dosage: 20 MG, 2X/DAY
     Route: 065
  11. AMILORIDE HCL W/HYDROCHLOROTHIAZIDE [Suspect]
     Active Substance: AMILORIDE HYDROCHLORIDE\HYDROCHLOROTHIAZIDE
     Dosage: 5/50 MG/DAY
     Route: 065

REACTIONS (4)
  - Lethargy [Unknown]
  - Overdose [Unknown]
  - Syncope [Unknown]
  - Toxicity to various agents [Unknown]
